FAERS Safety Report 17818561 (Version 1)
Quarter: 2020Q2

REPORT INFORMATION
  Report Type: Spontaneous
  Country: CO (occurrence: CO)
  Receive Date: 20200522
  Receipt Date: 20200522
  Transmission Date: 20200714
  Serious: Yes (Hospitalization, Other)
  Sender: FDA-Public Use
  Company Number: CO-EMD SERONO-9164273

PATIENT
  Age: 62 Year
  Sex: Male
  Weight: 85 kg

DRUGS (11)
  1. METFORMIN HYDROCHLORIDE. [Suspect]
     Active Substance: METFORMIN HYDROCHLORIDE
     Indication: DIABETES MELLITUS
     Route: 048
  2. MEKINIST [Suspect]
     Active Substance: TRAMETINIB DIMETHYL SULFOXIDE
     Route: 048
     Dates: start: 20180328
  3. TAFINLAR [Suspect]
     Active Substance: DABRAFENIB MESYLATE
     Route: 048
     Dates: start: 20180116
  4. LANTUS [Concomitant]
     Active Substance: INSULIN GLARGINE
  5. TAFINLAR [Suspect]
     Active Substance: DABRAFENIB MESYLATE
     Route: 048
     Dates: start: 20180328
  6. LOSARTAN. [Suspect]
     Active Substance: LOSARTAN
     Indication: HYPERTENSION
     Dosage: UNKNOWN DOSE
     Route: 048
  7. METFORMIN HYDROCHLORIDE. [Suspect]
     Active Substance: METFORMIN HYDROCHLORIDE
     Dosage: UNKNOWN DOSE
     Route: 048
  8. TAFINLAR [Suspect]
     Active Substance: DABRAFENIB MESYLATE
     Indication: METASTATIC MALIGNANT MELANOMA
     Route: 048
     Dates: start: 20171129
  9. ALLOPURINOL. [Concomitant]
     Active Substance: ALLOPURINOL
  10. MEKINIST [Suspect]
     Active Substance: TRAMETINIB DIMETHYL SULFOXIDE
     Route: 048
     Dates: start: 20180116
  11. MEKINIST [Suspect]
     Active Substance: TRAMETINIB DIMETHYL SULFOXIDE
     Indication: METASTATIC MALIGNANT MELANOMA
     Route: 048
     Dates: start: 20171129

REACTIONS (12)
  - Melanoma recurrent [Recovered/Resolved]
  - Blood glucose increased [Unknown]
  - Metastatic malignant melanoma [Unknown]
  - Cellulitis [Unknown]
  - Arthralgia [Unknown]
  - Blood potassium decreased [Unknown]
  - Neck pain [Not Recovered/Not Resolved]
  - Malignant neoplasm progression [Recovering/Resolving]
  - Amnesia [Unknown]
  - Infected neoplasm [Unknown]
  - Coma [Unknown]
  - Pain in extremity [Not Recovered/Not Resolved]

NARRATIVE: CASE EVENT DATE: 201906
